FAERS Safety Report 7931557-1 (Version None)
Quarter: 2011Q4

REPORT INFORMATION
  Report Type: 
  Country: None (occurrence: None)
  Receive Date: 20111121
  Receipt Date: 20111111
  Transmission Date: 20120403
  Serious: Yes (Other)
  Sender: FDA-Public Use
  Company Number: US-BAYER-2011-109374

PATIENT
  Sex: Female

DRUGS (1)
  1. MIRENA [Suspect]
     Indication: CONTRACEPTION
     Dosage: 20 MCG/24HR, CONT
     Route: 015
     Dates: start: 20110131, end: 20111109

REACTIONS (8)
  - MUSCLE SPASMS [None]
  - OLIGOMENORRHOEA [None]
  - ASTHENIA [None]
  - PAIN [None]
  - OVARIAN CYST [None]
  - ABDOMINAL DISTENSION [None]
  - DISCOMFORT [None]
  - GENITAL HAEMORRHAGE [None]
